FAERS Safety Report 16138310 (Version 2)
Quarter: 2019Q2

REPORT INFORMATION
  Report Type: Spontaneous
  Country: IT (occurrence: IT)
  Receive Date: 20190330
  Receipt Date: 20190503
  Transmission Date: 20190711
  Serious: Yes (Other)
  Sender: FDA-Public Use
  Company Number: IT-ACCORD-115995

PATIENT
  Age: 64 Year
  Sex: Male

DRUGS (2)
  1. OXALIPLATIN. [Suspect]
     Active Substance: OXALIPLATIN
     Indication: SMALL INTESTINE CARCINOMA
     Dosage: ALSO RECEIVED FROM 29-AUG-2018 TO 19-SEP-2018, ACTION TAKEN DOSE REDUCED
     Route: 042
     Dates: start: 20180829, end: 20181109
  2. CAPECITABINE. [Suspect]
     Active Substance: CAPECITABINE
     Indication: SMALL INTESTINE CARCINOMA
     Dosage: ALSO RECEIVED FROM 29-AUG-2018 TO 19-SEP-2018, ACTION TAKEN DOSE REDUCED
     Route: 048
     Dates: start: 20180829, end: 20181109

REACTIONS (7)
  - Blood lactate dehydrogenase increased [Recovering/Resolving]
  - Paraesthesia oral [Recovered/Resolved]
  - Gamma-glutamyltransferase increased [Recovering/Resolving]
  - Aspartate aminotransferase increased [Recovering/Resolving]
  - Neuropathy peripheral [Recovered/Resolved]
  - Blood alkaline phosphatase increased [Recovering/Resolving]
  - Alanine aminotransferase increased [Recovered/Resolved]

NARRATIVE: CASE EVENT DATE: 20181009
